FAERS Safety Report 16796390 (Version 1)
Quarter: 2019Q3

REPORT INFORMATION
  Report Type: Spontaneous
  Country: US (occurrence: US)
  Receive Date: 20190911
  Receipt Date: 20190911
  Transmission Date: 20191005
  Serious: No
  Sender: FDA-Public Use
  Company Number: US-SA-2019SA249021

PATIENT
  Age: 61 Year
  Sex: Female

DRUGS (2)
  1. TOUJEO [Suspect]
     Active Substance: INSULIN GLARGINE
     Indication: TYPE 1 DIABETES MELLITUS
     Dosage: 68 UNITS IN THE AM AND 66 UNITS IN THE PM
     Route: 065
  2. NPH [ISOPHANE INSULIN] [Concomitant]
     Active Substance: INSULIN NOS
     Dosage: UNK UNK, UNK
     Route: 065

REACTIONS (2)
  - Inappropriate schedule of product administration [Unknown]
  - Blood glucose abnormal [Unknown]
